FAERS Safety Report 9593098 (Version 1)
Quarter: 2013Q3

REPORT INFORMATION
  Report Type: Spontaneous
  Country: US (occurrence: None)
  Receive Date: 20130930
  Receipt Date: 20130930
  Transmission Date: 20140515
  Serious: Yes (Other)
  Sender: FDA-Public Use
  Company Number: 1000046336

PATIENT
  Age: 53 Year
  Sex: Female

DRUGS (7)
  1. LINZESS (LINACLOTIDE) (145 MICROGRAM, CAPSULES) [Suspect]
     Indication: IRRITABLE BOWEL SYNDROME
     Dosage: 145 MCG, 1 IN 1 D
     Route: 048
     Dates: start: 20130430, end: 20130505
  2. LINZESS (LINACLOTIDE) (145 MICROGRAM, CAPSULES) [Suspect]
     Indication: CONSTIPATION
     Dosage: 145 MCG, 1 IN 1 D
     Route: 048
     Dates: start: 20130430, end: 20130505
  3. COUMADIN SODIUM [Concomitant]
  4. SYNTHROID [Concomitant]
  5. PROTONIX [Concomitant]
  6. ZYRTEC [Concomitant]
  7. TOPAMAX [Concomitant]

REACTIONS (1)
  - International normalised ratio increased [None]
